FAERS Safety Report 9451561 (Version 1)
Quarter: 2013Q3

REPORT INFORMATION
  Report Type: Spontaneous
  Country: ES (occurrence: ES)
  Receive Date: 20130811
  Receipt Date: 20130811
  Transmission Date: 20140515
  Serious: Yes (Other)
  Sender: FDA-Public Use
  Company Number: ES-MYLANLABS-2013S1017085

PATIENT
  Age: 47 Year
  Sex: Male

DRUGS (1)
  1. AZATHIOPRINE [Suspect]
     Indication: CROHN^S DISEASE
     Dosage: ADJUSTED ACCORDING TO THIOPURINE S-METHYLTRANSFERASE ENZYME ACTIVITY
     Route: 065

REACTIONS (2)
  - Nodular regenerative hyperplasia [Not Recovered/Not Resolved]
  - Portal hypertension [Not Recovered/Not Resolved]
